FAERS Safety Report 23039839 (Version 1)
Quarter: 2023Q4

REPORT INFORMATION
  Report Type: Spontaneous
  Country: US (occurrence: None)
  Receive Date: 20231006
  Receipt Date: 20231006
  Transmission Date: 20240110
  Serious: No
  Sender: FDA-Public Use
  Company Number: None

PATIENT
  Sex: Male

DRUGS (1)
  1. HUMIRA [Suspect]
     Active Substance: ADALIMUMAB
     Indication: Psoriasis
     Dosage: OTHER FREQUENCY : EVERY14DAYS;?
     Route: 042
     Dates: start: 201804

REACTIONS (6)
  - Psoriasis [None]
  - Pruritus [None]
  - Skin burning sensation [None]
  - Drug ineffective [None]
  - Therapy interrupted [None]
  - Product dose omission issue [None]
